FAERS Safety Report 9689028 (Version 1)
Quarter: 2013Q4

REPORT INFORMATION
  Report Type: Spontaneous
  Country: ZA (occurrence: ZA)
  Receive Date: 20131114
  Receipt Date: 20131114
  Transmission Date: 20140711
  Serious: Yes (Hospitalization)
  Sender: FDA-Public Use
  Company Number: ZA-PFIZER INC-2013321712

PATIENT
  Age: 67 Year
  Sex: Female

DRUGS (4)
  1. LYRICA [Suspect]
     Indication: MUSCLE SPASMS
     Dosage: 75 MG, 2X/DAY (BD)
     Route: 048
     Dates: start: 20131101, end: 20131104
  2. CELEBREX [Concomitant]
     Indication: PAIN
     Dosage: 50 MG, 1X/DAY AT NIGHT (NOCTE)
     Route: 048
     Dates: start: 20131101
  3. TREPILINE [Concomitant]
     Indication: ANTIDEPRESSANT THERAPY
     Dosage: 10 MG, 1X/DAY AT NIGHT (NOCTE)
     Route: 048
     Dates: start: 20131101
  4. LIBRAX [Concomitant]
     Indication: MUSCLE SPASMS
     Dosage: 5 MG, DAILY
     Route: 048
     Dates: start: 20131101

REACTIONS (4)
  - Off label use [Unknown]
  - Irritable bowel syndrome [Unknown]
  - Somnolence [Recovered/Resolved]
  - Balance disorder [Unknown]
